FAERS Safety Report 18000520 (Version 3)
Quarter: 2020Q3

REPORT INFORMATION
  Report Type: Spontaneous
  Country: IT (occurrence: IT)
  Receive Date: 20200709
  Receipt Date: 20200826
  Transmission Date: 20201103
  Serious: Yes (Other)
  Sender: FDA-Public Use
  Company Number: IT-ROCHE-2638295

PATIENT
  Age: 60 Year

DRUGS (10)
  1. RANITIDINE. [Concomitant]
     Active Substance: RANITIDINE
  2. TROPISETRON [Concomitant]
     Active Substance: TROPISETRON
  3. DEXAMETHASONE. [Concomitant]
     Active Substance: DEXAMETHASONE
  4. CHLORPHENAMINE [Concomitant]
     Active Substance: CHLORPHENIRAMINE MALEATE
  5. APREPITANT. [Concomitant]
     Active Substance: APREPITANT
  6. CYCLOPHOSPHAMIDE. [Suspect]
     Active Substance: CYCLOPHOSPHAMIDE
     Indication: BREAST NEOPLASM
     Dosage: LAST DOSE OF CYCLOPHOSPHAMIDE RECEIVED ON 10/SEP/2015
     Route: 065
     Dates: start: 20150709
  7. PACLITAXEL. [Suspect]
     Active Substance: PACLITAXEL
     Indication: BREAST NEOPLASM
     Dosage: LAST DOSE OF PACLITAXEL RECEIVED ON 18/DEC/2015
     Route: 065
     Dates: start: 20151001
  8. PALONOSETRON HYDROCHLORIDE. [Concomitant]
     Active Substance: PALONOSETRON HYDROCHLORIDE
  9. EPIRUBICIN HYDROCHLORIDE. [Suspect]
     Active Substance: EPIRUBICIN HYDROCHLORIDE
     Indication: BREAST NEOPLASM
     Dosage: LAST DOSE OF EPIRUBICIN HYDROCHLORIDE RECEIVED ON 10/SEP/2015
     Route: 065
     Dates: start: 20150709
  10. TRASTUZUMAB. [Suspect]
     Active Substance: TRASTUZUMAB
     Indication: BREAST NEOPLASM
     Dosage: LAST DOSE OF TRASTUZUMAB RECEIVED ON 16/SEP/2016
     Route: 065
     Dates: start: 20151001

REACTIONS (1)
  - Syncope [Recovered/Resolved]

NARRATIVE: CASE EVENT DATE: 20151203
